FAERS Safety Report 10818429 (Version 2)
Quarter: 2015Q1

REPORT INFORMATION
  Report Type: Report from Study
  Country: US (occurrence: US)
  Receive Date: 20150218
  Receipt Date: 20150305
  Transmission Date: 20150721
  Serious: Yes (Hospitalization)
  Sender: FDA-Public Use
  Company Number: US-GLAXOSMITHKLINE-US2015017713

PATIENT
  Age: 67 Year
  Sex: Male
  Weight: 83.7 kg

DRUGS (3)
  1. TRAMETINIB [Suspect]
     Active Substance: TRAMETINIB
     Indication: BILE DUCT CANCER
     Dosage: 2 MG, QD
     Route: 048
     Dates: start: 20140425
  2. DABRAFENIB [Suspect]
     Active Substance: DABRAFENIB
     Dosage: 100 MG, BID
     Route: 048
     Dates: start: 20140717
  3. DABRAFENIB [Suspect]
     Active Substance: DABRAFENIB
     Indication: BILE DUCT CANCER
     Dosage: 150 MG, BID
     Route: 048
     Dates: start: 20140426

REACTIONS (1)
  - Bronchitis [Recovered/Resolved]

NARRATIVE: CASE EVENT DATE: 20150206
